FAERS Safety Report 19877937 (Version 7)
Quarter: 2025Q1

REPORT INFORMATION
  Report Type: Report from Study
  Country: CA (occurrence: CA)
  Receive Date: 20210923
  Receipt Date: 20250228
  Transmission Date: 20250409
  Serious: Yes (Other)
  Sender: TAKEDA
  Company Number: CA-TAKEDA-2020TUS002069

PATIENT
  Age: 64 Year
  Sex: Female

DRUGS (25)
  1. VEDOLIZUMAB [Suspect]
     Active Substance: VEDOLIZUMAB
     Indication: Colitis ulcerative
  2. VEDOLIZUMAB [Suspect]
     Active Substance: VEDOLIZUMAB
  3. VEDOLIZUMAB [Suspect]
     Active Substance: VEDOLIZUMAB
  4. VEDOLIZUMAB [Suspect]
     Active Substance: VEDOLIZUMAB
     Dosage: 300 MILLIGRAM, Q6WEEKS
     Dates: start: 20211108
  5. VEDOLIZUMAB [Suspect]
     Active Substance: VEDOLIZUMAB
     Dosage: 300 MILLIGRAM, Q6WEEKS
  6. VEDOLIZUMAB [Suspect]
     Active Substance: VEDOLIZUMAB
     Dosage: 300 MILLIGRAM, Q6WEEKS
  7. VEDOLIZUMAB [Suspect]
     Active Substance: VEDOLIZUMAB
     Dosage: 300 MILLIGRAM, Q4WEEKS
     Dates: start: 20230825
  8. VEDOLIZUMAB [Suspect]
     Active Substance: VEDOLIZUMAB
     Dosage: 300 MILLIGRAM, Q4WEEKS
     Dates: start: 20230825
  9. JANUMET [Concomitant]
     Active Substance: METFORMIN HYDROCHLORIDE\SITAGLIPTIN PHOSPHATE
  10. CRESTOR [Concomitant]
     Active Substance: ROSUVASTATIN CALCIUM
  11. FERAMAX [Concomitant]
     Active Substance: IRON\POLYSACCHARIDES
  12. IRBESARTAN [Concomitant]
     Active Substance: IRBESARTAN
  13. LEVOTHYROXINE [Concomitant]
     Active Substance: LEVOTHYROXINE
  14. METFORMIN [Concomitant]
     Active Substance: METFORMIN HYDROCHLORIDE
  15. DAPAGLIFLOZIN [Concomitant]
     Active Substance: DAPAGLIFLOZIN
  16. ROSUVASTATIN [Concomitant]
     Active Substance: ROSUVASTATIN
  17. FENOFIBRATE [Concomitant]
     Active Substance: FENOFIBRATE
  18. PANTOPRAZOLE [Concomitant]
     Active Substance: PANTOPRAZOLE
  19. EZETIMIBE [Concomitant]
     Active Substance: EZETIMIBE
  20. AMLODIPINE [Concomitant]
     Active Substance: AMLODIPINE BESYLATE
  21. CALTRATE [Concomitant]
     Active Substance: CALCIUM CARBONATE
  22. MAGNESIUM OXIDE [Concomitant]
     Active Substance: MAGNESIUM OXIDE
  23. VITAMIN B12 [Concomitant]
     Active Substance: CYANOCOBALAMIN
  24. VITAMIN D [Concomitant]
     Active Substance: VITAMIN D NOS
  25. OZEMPIC [Concomitant]
     Active Substance: SEMAGLUTIDE

REACTIONS (7)
  - Colitis ulcerative [Unknown]
  - Faeces discoloured [Not Recovered/Not Resolved]
  - Weight decreased [Unknown]
  - Therapeutic reaction time decreased [Unknown]
  - Off label use [Unknown]
  - Decreased appetite [Unknown]
  - Nausea [Unknown]

NARRATIVE: CASE EVENT DATE: 20211108
